FAERS Safety Report 11005047 (Version 4)
Quarter: 2019Q1

REPORT INFORMATION
  Report Type: Spontaneous
  Country: US (occurrence: US)
  Receive Date: 20150409
  Receipt Date: 20190103
  Transmission Date: 20190417
  Serious: No
  Sender: FDA-Public Use
  Company Number: US-PFIZER INC-2015118596

PATIENT
  Age: 65 Year
  Sex: Female
  Weight: 72.11 kg

DRUGS (2)
  1. LYRICA [Suspect]
     Active Substance: PREGABALIN
     Dosage: UNK
  2. AMBIEN [Concomitant]
     Active Substance: ZOLPIDEM TARTRATE
     Indication: SLEEP DISORDER
     Dosage: AT BEDTIME

REACTIONS (6)
  - Drug hypersensitivity [Unknown]
  - Pain [Unknown]
  - Peripheral swelling [Unknown]
  - Malaise [Unknown]
  - Gait disturbance [Unknown]
  - Erythema [Unknown]
